FAERS Safety Report 9789943 (Version 1)
Quarter: 2013Q4

REPORT INFORMATION
  Report Type: Spontaneous
  Country: US (occurrence: None)
  Receive Date: 20131230
  Receipt Date: 20131230
  Transmission Date: 20140711
  Serious: Yes (Hospitalization)
  Sender: FDA-Public Use
  Company Number: None

PATIENT
  Age: 55 Year
  Sex: Female
  Weight: 86.18 kg

DRUGS (1)
  1. FASLODEX [Suspect]
     Indication: BREAST CANCER
     Dosage: 500 MG ( 2 X 250 MG) MONTHLY INTO THE MUSCLE
     Route: 030
     Dates: start: 20121219, end: 20131218

REACTIONS (3)
  - Leukopenia [None]
  - Neutrophil count decreased [None]
  - Post procedural infection [None]
